FAERS Safety Report 5843827-1 (Version None)
Quarter: 2008Q3

REPORT INFORMATION
  Report Type: 
  Country: None (occurrence: None)
  Receive Date: 20080813
  Receipt Date: 20080805
  Transmission Date: 20090109
  Serious: Yes (Other)
  Sender: FDA-Public Use
  Company Number: PHHY2008FR09178

PATIENT
  Sex: Male

DRUGS (4)
  1. GLEEVEC [Suspect]
     Indication: CHRONIC MYELOID LEUKAEMIA
     Dosage: 400 MG, QD
     Route: 048
     Dates: start: 20010924, end: 20020529
  2. GLEEVEC [Suspect]
     Dosage: 300 MG, QD
     Dates: start: 20020529, end: 20041129
  3. GLEEVEC [Suspect]
     Dosage: 400 MG/DAY
     Dates: start: 20041129
  4. LEUPROLIDE ACETATE [Concomitant]
     Indication: PROSTATE CANCER
     Dosage: UNK
     Dates: start: 20080101

REACTIONS (4)
  - HYDROCELE [None]
  - HYDROCELE OPERATION [None]
  - PROSTATE CANCER [None]
  - PROSTATIC SPECIFIC ANTIGEN INCREASED [None]
